FAERS Safety Report 9785305 (Version 4)
Quarter: 2014Q1

REPORT INFORMATION
  Report Type: Report from Study
  Country: US (occurrence: US)
  Receive Date: 20131227
  Receipt Date: 20140205
  Transmission Date: 20141002
  Serious: Yes (Hospitalization)
  Sender: FDA-Public Use
  Company Number: US-JNJFOC-20131214022

PATIENT
  Age: 18 Year
  Sex: Female
  Weight: 53 kg

DRUGS (8)
  1. REMICADE [Suspect]
     Indication: INFLAMMATORY BOWEL DISEASE
     Route: 042
     Dates: start: 20130328
  2. REMICADE [Suspect]
     Indication: INFLAMMATORY BOWEL DISEASE
     Route: 042
     Dates: start: 20120112
  3. FLUOCINONIDE [Concomitant]
     Route: 065
  4. CLOBETASOL PROPIONATE [Concomitant]
     Route: 065
  5. IMODIUM [Concomitant]
     Route: 065
  6. ZYRTEC [Concomitant]
     Route: 065
  7. NYSTATIN [Concomitant]
     Route: 065
  8. AZATHIOPRINE [Concomitant]
     Route: 065

REACTIONS (1)
  - Gastrointestinal stoma complication [Recovered/Resolved]
